FAERS Safety Report 6930185-4 (Version None)
Quarter: 2010Q3

REPORT INFORMATION
  Report Type: 
  Country: None (occurrence: None)
  Receive Date: 20100818
  Receipt Date: 20100804
  Transmission Date: 20110219
  Serious: No
  Sender: FDA-Public Use
  Company Number: US-PFIZER INC-2008000542

PATIENT
  Sex: Female
  Weight: 70.454 kg

DRUGS (6)
  1. CHANTIX [Suspect]
     Indication: SMOKING CESSATION THERAPY
     Dosage: 1 MG, 2X/DAY
     Dates: start: 20070101
  2. PLAVIX [Concomitant]
     Dosage: UNK
  3. LIPITOR [Concomitant]
     Dosage: UNK
  4. MIRAPEX [Concomitant]
     Dosage: UNK
  5. SINEMET [Concomitant]
     Dosage: UNK
  6. LODINE [Concomitant]
     Dosage: UNK

REACTIONS (3)
  - MALAISE [None]
  - NASOPHARYNGITIS [None]
  - NAUSEA [None]
